FAERS Safety Report 14188372 (Version 1)
Quarter: 2017Q4

REPORT INFORMATION
  Report Type: Spontaneous
  Country: US (occurrence: US)
  Receive Date: 20171114
  Receipt Date: 20171114
  Transmission Date: 20180321
  Serious: No
  Sender: FDA-Public Use
  Company Number: US-BAUSCH-BL-2017-021644

PATIENT
  Age: 77 Year
  Sex: Female
  Weight: 63.56 kg

DRUGS (1)
  1. OPCON-A [Suspect]
     Active Substance: NAPHAZOLINE HYDROCHLORIDE\PHENIRAMINE MALEATE
     Indication: HYPERSENSITIVITY
     Route: 065
     Dates: start: 20170710, end: 20170711

REACTIONS (3)
  - Ocular hyperaemia [Recovering/Resolving]
  - Urticaria [Recovering/Resolving]
  - Blister [Recovering/Resolving]

NARRATIVE: CASE EVENT DATE: 20170712
